FAERS Safety Report 6906432-1 (Version None)
Quarter: 2010Q3

REPORT INFORMATION
  Report Type: 
  Country: None (occurrence: None)
  Receive Date: 20100804
  Receipt Date: 20100727
  Transmission Date: 20110219
  Serious: Yes (Other)
  Sender: FDA-Public Use
  Company Number: B0667509A

PATIENT
  Sex: Male

DRUGS (1)
  1. PAROXETINE HCL [Suspect]
     Indication: PRODUCT USED FOR UNKNOWN INDICATION
     Route: 065
     Dates: start: 20020104

REACTIONS (7)
  - AGORAPHOBIA [None]
  - CRYING [None]
  - DEPRESSION [None]
  - NIGHT SWEATS [None]
  - PANIC ATTACK [None]
  - SUICIDAL IDEATION [None]
  - WITHDRAWAL SYNDROME [None]
